FAERS Safety Report 18364447 (Version 1)
Quarter: 2020Q4

REPORT INFORMATION
  Report Type: Spontaneous
  Country: US (occurrence: US)
  Receive Date: 20201009
  Receipt Date: 20201009
  Transmission Date: 20210114
  Serious: No
  Sender: FDA-Public Use
  Company Number: US-SA-2020SA273495

PATIENT

DRUGS (1)
  1. APIDRA [Suspect]
     Active Substance: INSULIN GLULISINE
     Indication: TYPE 2 DIABETES MELLITUS
     Dosage: 12 UNITS 10 UNIT 28 UNITS, TID
     Route: 065
     Dates: start: 2019

REACTIONS (2)
  - Device issue [Unknown]
  - Intentional device misuse [Unknown]
